FAERS Safety Report 8283393-7 (Version None)
Quarter: 2012Q2

REPORT INFORMATION
  Report Type: 
  Country: None (occurrence: None)
  Receive Date: 20120413
  Receipt Date: 20120402
  Transmission Date: 20120825
  Serious: Yes (Hospitalization)
  Sender: FDA-Public Use
  Company Number: FR-MILLENNIUM PHARMACEUTICALS, INC.-2012-02416

PATIENT

DRUGS (4)
  1. VELCADE [Suspect]
     Indication: MULTIPLE MYELOMA
     Dosage: 1.3 MG/M2, UNK
     Route: 042
     Dates: start: 20110927
  2. DEXAMETHASONE [Suspect]
     Indication: MULTIPLE MYELOMA
     Dosage: 20 MG, UNK
     Route: 048
     Dates: start: 20110927
  3. OXYCODONE HCL [Concomitant]
     Indication: PAIN
     Dosage: 20 MG, UNK
     Dates: start: 20111024
  4. OXYCONTIN [Concomitant]
     Indication: PAIN
     Dosage: 20 MG, UNK
     Dates: start: 20111024

REACTIONS (2)
  - TENDONITIS [None]
  - RADICULITIS LUMBOSACRAL [None]
